FAERS Safety Report 25947381 (Version 1)
Quarter: 2025Q4

REPORT INFORMATION
  Report Type: Report from Study
  Country: IN (occurrence: IN)
  Receive Date: 20251022
  Receipt Date: 20251022
  Transmission Date: 20260118
  Serious: Yes (Death, Other)
  Sender: DAIICHI
  Company Number: IN-AstraZeneca-CH-00974359A

PATIENT
  Sex: Female
  Weight: 60 kg

DRUGS (1)
  1. ENHERTU [Suspect]
     Active Substance: FAM-TRASTUZUMAB DERUXTECAN-NXKI
     Indication: HER2 low breast cancer
     Dosage: 300 MG, ONCE EVERY 3 WK
     Route: 041

REACTIONS (2)
  - Respiratory failure [Fatal]
  - Pulmonary mass [Fatal]
